FAERS Safety Report 8901135 (Version 2)
Quarter: 2012Q4

REPORT INFORMATION
  Report Type: 
  Country: US (occurrence: US)
  Receive Date: 20121109
  Receipt Date: 20121128
  Transmission Date: 20130627
  Serious: No
  Sender: FDA-Public Use
  Company Number: US-PFIZER INC-2012278046

PATIENT
  Age: 81 Year

DRUGS (5)
  1. LIPITOR [Suspect]
     Dosage: UNK
  2. CODEINE [Suspect]
     Dosage: UNK
  3. COUMADIN [Suspect]
     Dosage: UNK
  4. TRICOR [Suspect]
     Dosage: UNK
  5. ZOCOR [Suspect]
     Dosage: UNK

REACTIONS (1)
  - Drug hypersensitivity [Unknown]
